FAERS Safety Report 5085396-2 (Version None)
Quarter: 2006Q3

REPORT INFORMATION
  Report Type: 
  Country: None (occurrence: None)
  Receive Date: 20060822
  Receipt Date: 20060817
  Transmission Date: 20061208
  Serious: Yes (Other)
  Sender: FDA-Public Use
  Company Number: US-BRISTOL-MYERS SQUIBB COMPANY-13478391

PATIENT
  Age: 69 Year
  Sex: Female
  Weight: 79 kg

DRUGS (2)
  1. AVALIDE [Suspect]
     Dosage: DOSING IS 300 MG/ 12.5 MG DAILY
     Route: 048
  2. SYNTHROID [Concomitant]
     Dates: start: 19850101

REACTIONS (4)
  - DEAFNESS NEUROSENSORY [None]
  - HEADACHE [None]
  - PRURITUS [None]
  - TINNITUS [None]
